FAERS Safety Report 19304930 (Version 2)
Quarter: 2021Q4

REPORT INFORMATION
  Report Type: Report from Study
  Country: US (occurrence: US)
  Receive Date: 20210526
  Receipt Date: 20211118
  Transmission Date: 20220303
  Serious: Yes (Hospitalization)
  Sender: FDA-Public Use
  Company Number: US-ABBVIE-21K-163-3920326-00

PATIENT
  Age: 28 Year
  Sex: Female

DRUGS (2)
  1. HUMIRA [Suspect]
     Active Substance: ADALIMUMAB
     Indication: Colitis ulcerative
     Dosage: CF PEN
     Route: 058
  2. COVID-19 VACCINE [Concomitant]
     Indication: COVID-19 immunisation
     Dosage: JOHNSON AND JOHNSON

REACTIONS (9)
  - Internal haemorrhage [Unknown]
  - Colitis ulcerative [Not Recovered/Not Resolved]
  - Flatulence [Unknown]
  - Stress [Not Recovered/Not Resolved]
  - Discomfort [Unknown]
  - COVID-19 [Not Recovered/Not Resolved]
  - Malaise [Unknown]
  - Therapeutic response shortened [Unknown]
  - Pain [Unknown]

NARRATIVE: CASE EVENT DATE: 20210901
